FAERS Safety Report 8843425 (Version 3)
Quarter: 2012Q4

REPORT INFORMATION
  Report Type: 
  Country: IT (occurrence: IT)
  Receive Date: 20121016
  Receipt Date: 20121120
  Transmission Date: 20130627
  Serious: Yes (Hospitalization)
  Sender: FDA-Public Use
  Company Number: IT-ELI_LILLY_AND_COMPANY-IT201210001713

PATIENT
  Age: 76 Year
  Sex: Male

DRUGS (10)
  1. HUMALOG LISPRO [Suspect]
     Indication: DIABETES MELLITUS
     Dosage: 19 u, qd
     Route: 058
     Dates: start: 20120315
  2. INDERAL [Concomitant]
     Dosage: 120 mg, qd
     Route: 048
     Dates: start: 20120315, end: 20121002
  3. NOVOMIX [Concomitant]
     Indication: DIABETES MELLITUS
     Dosage: 20 DF, qd
     Route: 058
     Dates: start: 20120315
  4. SIMVASTATIN [Concomitant]
     Dosage: 40 mg, UNK
     Route: 048
  5. SPIRONOLACTONE [Concomitant]
     Dosage: 25 mg, UNK
     Route: 048
  6. RAMIPRIL [Concomitant]
     Dosage: 2.5 mg, UNK
     Route: 048
  7. TAPAZOLE [Concomitant]
     Dosage: 10 mg, UNK
     Route: 048
  8. CARDIRENE [Concomitant]
     Dosage: 160 mg, UNK
     Route: 048
  9. ZOLOFT [Concomitant]
     Dosage: 25 mg, UNK
     Route: 048
  10. LASIX [Concomitant]
     Dosage: 25 mg, UNK
     Route: 048

REACTIONS (3)
  - Confusional state [Recovered/Resolved]
  - Hyporeflexia [Recovered/Resolved]
  - Hypoglycaemia [Recovered/Resolved]
